FAERS Safety Report 7809586-8 (Version None)
Quarter: 2011Q4

REPORT INFORMATION
  Report Type: 
  Country: None (occurrence: None)
  Receive Date: 20111012
  Receipt Date: 20110920
  Transmission Date: 20120403
  Serious: Yes (Hospitalization)
  Sender: FDA-Public Use
  Company Number: CM-MERCK-1109USA01934

PATIENT
  Age: 45 Year
  Sex: Male

DRUGS (4)
  1. STROMECTOL [Suspect]
     Indication: FILARIASIS LYMPHATIC
     Route: 048
     Dates: start: 20110831
  2. ALBENDAZOLE [Suspect]
     Indication: FILARIASIS LYMPHATIC
     Route: 048
     Dates: start: 20110831
  3. STROMECTOL [Suspect]
     Indication: ONCHOCERCIASIS
     Route: 048
     Dates: start: 20110831
  4. ALBENDAZOLE [Suspect]
     Indication: ONCHOCERCIASIS
     Route: 048
     Dates: start: 20110831

REACTIONS (7)
  - ASTHENIA [None]
  - NERVOUS SYSTEM DISORDER [None]
  - BACK PAIN [None]
  - OCULAR HYPERAEMIA [None]
  - CHILLS [None]
  - GAIT DISTURBANCE [None]
  - DYSARTHRIA [None]
